FAERS Safety Report 13976999 (Version 1)
Quarter: 2017Q3

REPORT INFORMATION
  Report Type: Spontaneous
  Country: US (occurrence: US)
  Receive Date: 20170915
  Receipt Date: 20170915
  Transmission Date: 20171128
  Serious: Yes (Other)
  Sender: FDA-Public Use
  Company Number: US-ROCHE-701018

PATIENT
  Sex: Female
  Weight: 72.6 kg

DRUGS (8)
  1. XELODA [Suspect]
     Active Substance: CAPECITABINE
     Indication: BREAST CANCER METASTATIC
     Dosage: TWO WEEKS ON/ONE WEEK OFF
     Route: 048
  2. XELODA [Suspect]
     Active Substance: CAPECITABINE
     Dosage: DOSE REDUCED
     Route: 048
  3. HERCEPTIN [Suspect]
     Active Substance: TRASTUZUMAB
     Indication: BREAST CANCER METASTATIC
     Route: 048
  4. TRAZODONE [Concomitant]
     Active Substance: TRAZODONE HYDROCHLORIDE
     Route: 065
  5. OXYCONTIN [Concomitant]
     Active Substance: OXYCODONE HYDROCHLORIDE
     Route: 065
  6. NAPROSYN [Concomitant]
     Active Substance: NAPROXEN
     Route: 065
  7. HERCEPTIN [Suspect]
     Active Substance: TRASTUZUMAB
     Route: 048
  8. METHADONE [Concomitant]
     Active Substance: METHADONE HYDROCHLORIDE
     Route: 065

REACTIONS (3)
  - Skin disorder [Not Recovered/Not Resolved]
  - Skin fissures [Not Recovered/Not Resolved]
  - Cardiac disorder [Unknown]
